FAERS Safety Report 7010347-0 (Version None)
Quarter: 2010Q3

REPORT INFORMATION
  Report Type: 
  Country: None (occurrence: None)
  Receive Date: 20100923
  Receipt Date: 20100913
  Transmission Date: 20110219
  Serious: Yes (Other)
  Sender: FDA-Public Use
  Company Number: B0675038A

PATIENT
  Age: 37 Year
  Sex: Female

DRUGS (2)
  1. CLOBETASOL PROPIONATE [Suspect]
     Dosage: 100G PER DAY
     Route: 061
  2. BETAMETHASONE BUTYRATE PROPIONATE [Suspect]
     Dosage: 300G PER DAY

REACTIONS (9)
  - BLOOD CORTICOTROPHIN DECREASED [None]
  - BLOOD CORTISOL DECREASED [None]
  - BLOOD GLUCOSE INCREASED [None]
  - CUSHING'S SYNDROME [None]
  - CUSHINGOID [None]
  - FLUSHING [None]
  - GLYCOSYLATED HAEMOGLOBIN INCREASED [None]
  - SKIN ATROPHY [None]
  - WEIGHT INCREASED [None]
